FAERS Safety Report 5441214-1 (Version None)
Quarter: 2007Q3

REPORT INFORMATION
  Report Type: 
  Country: None (occurrence: None)
  Receive Date: 20070901
  Receipt Date: 20070823
  Transmission Date: 20080115
  Serious: Yes (Other)
  Sender: FDA-Public Use
  Company Number: JP-PFIZER INC-2007070464

PATIENT
  Age: 45 Year
  Sex: Male

DRUGS (4)
  1. ZOLOFT [Suspect]
     Indication: DEPRESSION
     Route: 048
  2. SIMVASTATIN [Suspect]
     Indication: HYPERLIPIDAEMIA
  3. ALL OTHER THERAPEUTIC PRODUCTS [Concomitant]
  4. SLEEP AID [Concomitant]

REACTIONS (1)
  - RHABDOMYOLYSIS [None]
